FAERS Safety Report 4865837-3 (Version None)
Quarter: 2005Q4

REPORT INFORMATION
  Report Type: 
  Country: None (occurrence: None)
  Receive Date: 20051220
  Receipt Date: 20051201
  Transmission Date: 20060501
  Serious: Yes (Death, Hospitalization)
  Sender: FDA-Public Use
  Company Number: US_0511123895

PATIENT
  Age: 96 Year
  Sex: Female
  Weight: 44 kg

DRUGS (8)
  1. FORTEO [Suspect]
     Indication: OSTEOPOROSIS
     Dosage: 20 UG, DAILY (1/D), SUBCUTANEOUS
     Route: 058
     Dates: start: 20040401, end: 20050831
  2. CARVEDILOL [Concomitant]
  3. COUMADIN [Concomitant]
  4. LANITOP (METILDIGOXIN) [Concomitant]
  5. LOSARTAN POTASSIUM [Concomitant]
  6. PLAMET (BROMOPRIDE) [Concomitant]
  7. OMEPRAZOLE [Concomitant]
  8. FORTEO PEN (FORTEO PEN) PEN, DISPOSABLE [Concomitant]

REACTIONS (6)
  - CARDIAC ARREST [None]
  - FEMUR FRACTURE [None]
  - RESPIRATORY FAILURE [None]
  - RESPIRATORY TRACT INFECTION [None]
  - SEPSIS [None]
  - SPINAL FRACTURE [None]
